FAERS Safety Report 5576513-6 (Version None)
Quarter: 2007Q4

REPORT INFORMATION
  Report Type: 
  Country: None (occurrence: None)
  Receive Date: 20071228
  Receipt Date: 20071227
  Transmission Date: 20080405
  Serious: Yes (Hospitalization)
  Sender: FDA-Public Use
  Company Number: B0465559A

PATIENT
  Age: 31 Year
  Sex: Female
  Weight: 55 kg

DRUGS (8)
  1. PAXIL [Suspect]
     Indication: ADJUSTMENT DISORDER WITH DEPRESSED MOOD
     Route: 048
  2. MEILAX [Concomitant]
     Dosage: 1MG PER DAY
     Route: 048
     Dates: end: 20070402
  3. MYSLEE [Concomitant]
     Dosage: 10MG PER DAY
     Route: 048
     Dates: end: 20070402
  4. WASSER V [Concomitant]
     Dosage: 1G PER DAY
     Route: 048
     Dates: end: 20070402
  5. VITAMEDIN [Concomitant]
     Dosage: 1G PER DAY
     Route: 048
     Dates: start: 20070402
  6. EPADEL [Concomitant]
     Dosage: 1800MG PER DAY
     Route: 048
     Dates: start: 20070402
  7. CHINESE MEDICINE [Concomitant]
     Dosage: 7.5MG PER DAY
     Route: 048
     Dates: start: 20070402
  8. UTEMERIN [Concomitant]
     Route: 048
     Dates: start: 20070402

REACTIONS (2)
  - DRUG EXPOSURE DURING PREGNANCY [None]
  - THREATENED LABOUR [None]
